FAERS Safety Report 19858093 (Version 2)
Quarter: 2021Q4

REPORT INFORMATION
  Report Type: Report from Study
  Country: JP (occurrence: JP)
  Receive Date: 20210921
  Receipt Date: 20211220
  Transmission Date: 20220303
  Serious: No
  Sender: FDA-Public Use
  Company Number: JP-BAYER-2021-211531

PATIENT
  Age: 50 Year
  Sex: Male

DRUGS (5)
  1. VENTAVIS [Suspect]
     Active Substance: ILOPROST
     Indication: Pulmonary arterial hypertension
     Dosage: 2.5 UG, 2-3 TIMES A DAY
     Route: 055
     Dates: start: 20210120, end: 20210125
  2. MACITENTAN [Concomitant]
     Active Substance: MACITENTAN
     Dosage: DAILY DOSE 10 MG
     Route: 048
     Dates: start: 20200813
  3. SELEXIPAG [Concomitant]
     Active Substance: SELEXIPAG
     Dosage: DAILY DOSE .6 MG
     Route: 048
     Dates: start: 20200815
  4. OXYGEN [Concomitant]
     Active Substance: OXYGEN
     Indication: Pulmonary arterial hypertension
     Dosage: UNK
     Route: 065
     Dates: start: 20110223, end: 20210210
  5. TADALAFIL [Concomitant]
     Active Substance: TADALAFIL
     Route: 048
     Dates: start: 20181226

REACTIONS (2)
  - Therapeutic product effect incomplete [Unknown]
  - Inappropriate schedule of product administration [Unknown]

NARRATIVE: CASE EVENT DATE: 20210101
